FAERS Safety Report 17590771 (Version 1)
Quarter: 2020Q1

REPORT INFORMATION
  Report Type: Spontaneous
  Country: US (occurrence: US)
  Receive Date: 20200327
  Receipt Date: 20200327
  Transmission Date: 20200409
  Serious: Yes (Other)
  Sender: FDA-Public Use
  Company Number: US-PFIZER INC-2020124197

PATIENT
  Age: 55 Year
  Sex: Male

DRUGS (2)
  1. XELJANZ [Suspect]
     Active Substance: TOFACITINIB CITRATE
     Indication: RHEUMATOID ARTHRITIS
     Dosage: 5 MG, 2X/DAY
     Route: 048
     Dates: start: 2019
  2. ALEVE [Suspect]
     Active Substance: NAPROXEN SODIUM
     Indication: IMMUNE SYSTEM DISORDER
     Dosage: UNK

REACTIONS (3)
  - Renal impairment [Unknown]
  - Immune system disorder [Unknown]
  - Influenza [Unknown]
